FAERS Safety Report 14099060 (Version 1)
Quarter: 2017Q4

REPORT INFORMATION
  Report Type: Spontaneous
  Country: ZA (occurrence: ZA)
  Receive Date: 20171017
  Receipt Date: 20171017
  Transmission Date: 20180321
  Serious: Yes (Hospitalization)
  Sender: FDA-Public Use
  Company Number: ZA-ASTRAZENECA-2017SF04446

PATIENT
  Sex: Male

DRUGS (9)
  1. ARCOXIA [Concomitant]
     Active Substance: ETORICOXIB
     Dosage: 60.0MG UNKNOWN
  2. NEXIAM [Suspect]
     Active Substance: ESOMEPRAZOLE
     Indication: ULCER
     Dosage: 20.0MG UNKNOWN
     Route: 048
  3. PANTOPRAZOLE [Concomitant]
     Active Substance: PANTOPRAZOLE
     Dosage: 20.0MG UNKNOWN
  4. ASPAVOR [Concomitant]
     Active Substance: ATORVASTATIN
     Dosage: 20.0MG UNKNOWN
  5. EGLONYL [Concomitant]
     Dosage: 50.0MG UNKNOWN
  6. SERTA [Concomitant]
     Dosage: 50.0MG UNKNOWN
  7. SYMBICORD [Concomitant]
     Active Substance: BUDESONIDE\FORMOTEROL
     Dosage: 320.0MG UNKNOWN
  8. CITALOPRAM [Concomitant]
     Active Substance: CITALOPRAM HYDROBROMIDE
     Dosage: 20.0MG UNKNOWN
  9. VOLTAREN [Concomitant]
     Active Substance: DICLOFENAC SODIUM
     Dosage: 100.0MG UNKNOWN

REACTIONS (1)
  - Post procedural sepsis [Not Recovered/Not Resolved]
